FAERS Safety Report 8308567-8 (Version None)
Quarter: 2012Q2

REPORT INFORMATION
  Report Type: 
  Country: None (occurrence: None)
  Receive Date: 20120424
  Receipt Date: 20120411
  Transmission Date: 20120825
  Serious: Yes (Other)
  Sender: FDA-Public Use
  Company Number: CA-ELI_LILLY_AND_COMPANY-CA201204003495

PATIENT
  Sex: Female

DRUGS (11)
  1. CYMBALTA [Suspect]
     Dosage: 30 MG, BID
     Route: 048
  2. LYRICA [Concomitant]
     Dosage: 125 MG, BID
     Route: 048
  3. OXYCODONE HCL [Concomitant]
  4. LYRICA [Concomitant]
     Dosage: 275 MG, QD
     Route: 048
  5. AMITRIPTYLINE HCL [Concomitant]
     Dosage: 10 MG, BID
  6. LYRICA [Concomitant]
     Dosage: 300 MG, TID
  7. LYRICA [Concomitant]
     Dosage: 500 MG, QD
  8. MORPHINE [Concomitant]
  9. LYRICA [Concomitant]
     Dosage: 100 MG, BID
     Route: 048
  10. LYRICA [Concomitant]
     Dosage: 200 MG, BID
     Route: 048
  11. LYRICA [Concomitant]
     Dosage: 300 MG, BID

REACTIONS (6)
  - UTERINE CANCER [None]
  - IRRITABILITY [None]
  - FATIGUE [None]
  - OEDEMA PERIPHERAL [None]
  - FIBROMYALGIA [None]
  - DRY MOUTH [None]
